FAERS Safety Report 20622993 (Version 4)
Quarter: 2022Q2

REPORT INFORMATION
  Report Type: Report from Study
  Country: FR (occurrence: FR)
  Receive Date: 20220322
  Receipt Date: 20220525
  Transmission Date: 20220720
  Serious: Yes (Hospitalization, Other)
  Sender: FDA-Public Use
  Company Number: FR-NOVARTISPH-NVSC2022FR063636

PATIENT
  Sex: Female
  Weight: 13 kg

DRUGS (2)
  1. KYMRIAH [Suspect]
     Active Substance: TISAGENLECLEUCEL
     Indication: Follicular lymphoma
     Dosage: UNK, ONCE/SINGLE (0.6 X 10E8- 6 X 10E8)
     Route: 042
     Dates: start: 20220222
  2. NEBIVOLOL [Suspect]
     Active Substance: NEBIVOLOL
     Indication: Tachycardia
     Dosage: 8 MG, QD
     Route: 048
     Dates: end: 20220224

REACTIONS (3)
  - Sinus node dysfunction [Recovered/Resolved]
  - Syncope [Recovered/Resolved]
  - Cytokine release syndrome [Unknown]

NARRATIVE: CASE EVENT DATE: 20220224
